FAERS Safety Report 7403662-X (Version None)
Quarter: 2011Q1

REPORT INFORMATION
  Report Type: 
  Country: None (occurrence: None)
  Receive Date: 20110331
  Receipt Date: 20110318
  Transmission Date: 20110831
  Serious: No
  Sender: FDA-Public Use
  Company Number: 201103044

PATIENT
  Age: 50 Year
  Sex: Male
  Weight: 104.3273 kg

DRUGS (3)
  1. METFORMIN HCL [Concomitant]
  2. TESTIM [Suspect]
     Indication: BLOOD TESTOSTERONE DECREASED
     Dosage: 50 MG, 1 IN 1 D, TRANSDERMAL
     Route: 062
     Dates: start: 20110101
  3. GLIPIZIDE [Concomitant]

REACTIONS (3)
  - ABORTION SPONTANEOUS [None]
  - DRUG EXPOSURE DURING PREGNANCY [None]
  - ACCIDENTAL EXPOSURE [None]
